FAERS Safety Report 7819820-6 (Version None)
Quarter: 2011Q4

REPORT INFORMATION
  Report Type: 
  Country: None (occurrence: None)
  Receive Date: 20111018
  Receipt Date: 20110620
  Transmission Date: 20120403
  Serious: Yes (Other)
  Sender: FDA-Public Use
  Company Number: US-ASTRAZENECA-2011SE30825

PATIENT
  Age: 67 Year
  Sex: Female
  Weight: 59.9 kg

DRUGS (5)
  1. SYMBICORT [Suspect]
     Indication: BRONCHITIS
     Dosage: 160/4.5 TWO TIMES A DAY
     Route: 055
     Dates: start: 20110508, end: 20110508
  2. EVISTA [Concomitant]
     Indication: OSTEOPOROSIS
     Route: 048
     Dates: start: 20010101
  3. FOSAMAX [Concomitant]
     Indication: OSTEOPOROSIS
     Route: 048
     Dates: start: 20010101
  4. OMEPRAZOLE [Concomitant]
     Indication: GASTROOESOPHAGEAL REFLUX DISEASE
     Route: 048
     Dates: start: 20110425
  5. SYMBICORT [Suspect]
     Indication: WHEEZING
     Dosage: 160/4.5 TWO TIMES A DAY
     Route: 055
     Dates: start: 20110508, end: 20110508

REACTIONS (1)
  - ATRIAL FIBRILLATION [None]
